FAERS Safety Report 4776645-6 (Version None)
Quarter: 2005Q3

REPORT INFORMATION
  Report Type: 
  Country: None (occurrence: None)
  Receive Date: 20050921
  Receipt Date: 20050909
  Transmission Date: 20060218
  Serious: Yes (Hospitalization, Other)
  Sender: FDA-Public Use
  Company Number: 200513638BCC

PATIENT
  Age: 77 Year
  Sex: Female
  Weight: 79.8331 kg

DRUGS (20)
  1. ASPIRIN [Suspect]
     Indication: MYOCARDIAL INFARCTION
     Dosage: 81 MG, QD, ORAL
     Route: 048
     Dates: start: 20050726, end: 20050820
  2. ASPIRIN [Suspect]
     Indication: PROPHYLAXIS
     Dosage: 81 MG, QD, ORAL
     Route: 048
     Dates: start: 20050726, end: 20050820
  3. ASPIRIN [Suspect]
     Indication: MYOCARDIAL INFARCTION
     Dosage: 81 MG, QD, ORAL
     Route: 048
     Dates: start: 20050821
  4. ASPIRIN [Suspect]
     Indication: PROPHYLAXIS
     Dosage: 81 MG, QD, ORAL
     Route: 048
     Dates: start: 20050821
  5. PHILLIP'S MILK OF MAGNESIA CHERRY LIQUID (MILK OF MAGNESIA) [Suspect]
     Indication: CONSTIPATION
     Dosage: 60 ML, IRR, ORAL
     Route: 048
     Dates: start: 20050101, end: 20050906
  6. SHACKLEY VITAMIN C [Concomitant]
  7. VITAMIN E [Concomitant]
  8. MULTIVITAMIN [Concomitant]
  9. CALTRATE [Concomitant]
  10. SANCTURA [Concomitant]
  11. CEPHALEXIN [Concomitant]
  12. PRILOSEC [Concomitant]
  13. PREDNISONE [Concomitant]
  14. ENALAPRIL [Concomitant]
  15. COREG [Concomitant]
  16. BENICAR HCT [Concomitant]
  17. LORAZEPAM [Concomitant]
  18. CLONIDINE [Concomitant]
  19. CELEXA [Concomitant]
  20. TRAZODONE [Concomitant]

REACTIONS (5)
  - ABDOMINAL PAIN UPPER [None]
  - BLOOD PRESSURE INCREASED [None]
  - CONDITION AGGRAVATED [None]
  - FAECALOMA [None]
  - HAEMATOCHEZIA [None]
